FAERS Safety Report 10133776 (Version 1)
Quarter: 2014Q2

REPORT INFORMATION
  Report Type: Report from Study
  Country: US (occurrence: US)
  Receive Date: 20140428
  Receipt Date: 20140428
  Transmission Date: 20141212
  Serious: Yes (Other)
  Sender: FDA-Public Use
  Company Number: US-BAYER-2014-056726

PATIENT
  Sex: Female

DRUGS (2)
  1. ACETYLSALICYLIC ACID (} 100 MG) [Suspect]
     Indication: THROMBOSIS PROPHYLAXIS
     Dosage: 325 MG, QD
  2. CLOPIDOGREL [Suspect]
     Indication: THROMBOSIS PROPHYLAXIS
     Dosage: 75 MG, QD

REACTIONS (4)
  - Thrombocytopenia [Recovered/Resolved]
  - Retroperitoneal haematoma [Recovered/Resolved]
  - Increased tendency to bruise [None]
  - Labelled drug-drug interaction medication error [None]
